FAERS Safety Report 9103623 (Version 1)
Quarter: 2013Q1

REPORT INFORMATION
  Report Type: Spontaneous
  Country: US (occurrence: US)
  Receive Date: 20130219
  Receipt Date: 20130219
  Transmission Date: 20140127
  Serious: No
  Sender: FDA-Public Use
  Company Number: US-PFIZER INC-2013061964

PATIENT
  Sex: Male

DRUGS (3)
  1. ADVIL PM [Suspect]
     Dosage: 300 MG, UNK
     Dates: start: 20130215
  2. AMOXICILLIN [Suspect]
     Dosage: 1000 MG, 2X/DAY
  3. PREDNISONE [Suspect]
     Dosage: 20MG, DAILY

REACTIONS (2)
  - Headache [Not Recovered/Not Resolved]
  - Malaise [Not Recovered/Not Resolved]
